FAERS Safety Report 7885927-0 (Version None)
Quarter: 2011Q4

REPORT INFORMATION
  Report Type: 
  Country: None (occurrence: None)
  Receive Date: 20111102
  Receipt Date: 20110705
  Transmission Date: 20120403
  Serious: No
  Sender: FDA-Public Use
  Company Number: US-AMGEN-USASP2011024665

PATIENT
  Age: 57 Year
  Sex: Male
  Weight: 77.098 kg

DRUGS (13)
  1. VITAMIN D [Concomitant]
     Dosage: 1000 UNIT, UNK
  2. CALCIUM [Concomitant]
     Dosage: 500 UNK, UNK
  3. VITAMIN B6 [Concomitant]
     Dosage: 250 MG, UNK
  4. FOLIC ACID [Concomitant]
     Dosage: 20 MG, UNK
  5. ADALAT CC [Concomitant]
     Dosage: 30 MG, UNK
  6. MAGNESIUM [Concomitant]
     Dosage: 300 MG, UNK
  7. ENBREL [Suspect]
     Indication: PRODUCT USED FOR UNKNOWN INDICATION
     Dosage: 50 MG, QWK
     Route: 058
  8. DOXAZOSIN MESYLATE [Concomitant]
     Dosage: 1 MG, UNK
  9. ISOSORB DINIT [Concomitant]
     Dosage: 10 MG, UNK
  10. METHOTREXATE [Concomitant]
     Dosage: 25 MG, UNK
  11. KLOR-CON [Concomitant]
     Dosage: 20 MEQ, UNK
  12. HYDROCHLOROTH [Concomitant]
     Dosage: 25 MG, UNK
  13. FERROUS SULFATE TAB [Concomitant]

REACTIONS (1)
  - FATIGUE [None]
